FAERS Safety Report 5935898-9 (Version None)
Quarter: 2008Q4

REPORT INFORMATION
  Report Type: 
  Country: None (occurrence: None)
  Receive Date: 20081030
  Receipt Date: 20071106
  Transmission Date: 20090506
  Serious: No
  Sender: FDA-Public Use
  Company Number: A0691718A

PATIENT
  Age: 35 Year
  Sex: Male

DRUGS (3)
  1. IMITREX [Suspect]
     Indication: HEADACHE
     Dosage: 20MG AS REQUIRED
     Route: 045
     Dates: start: 20071026
  2. DARVOCET [Concomitant]
  3. CYMBALTA [Concomitant]

REACTIONS (3)
  - INFLUENZA [None]
  - NAUSEA [None]
  - WHEEZING [None]
